FAERS Safety Report 18740801 (Version 1)
Quarter: 2021Q1

REPORT INFORMATION
  Report Type: Spontaneous
  Country: US (occurrence: US)
  Receive Date: 20210114
  Receipt Date: 20210114
  Transmission Date: 20210419
  Serious: Yes (Death)
  Sender: FDA-Public Use
  Company Number: None

PATIENT
  Age: 65 Year
  Sex: Male
  Weight: 93.4 kg

DRUGS (2)
  1. GEMCITABINE HYDROCHLORIDE. [Suspect]
     Active Substance: GEMCITABINE HYDROCHLORIDE
     Dates: end: 20200312
  2. CISPLATIN. [Suspect]
     Active Substance: CISPLATIN
     Dates: end: 20201201

REACTIONS (15)
  - Vomiting [None]
  - Cholangiocarcinoma [None]
  - Pancreatitis acute [None]
  - Respiratory distress [None]
  - Nephropathy [None]
  - Abdominal pain [None]
  - Constipation [None]
  - Atelectasis [None]
  - Nausea [None]
  - Delirium [None]
  - Diarrhoea [None]
  - Hepatic encephalopathy [None]
  - Metastases to central nervous system [None]
  - Sepsis [None]
  - Arthropathy [None]

NARRATIVE: CASE EVENT DATE: 20201223
